FAERS Safety Report 22027244 (Version 1)
Quarter: 2023Q1

REPORT INFORMATION
  Report Type: Spontaneous
  Country: SI (occurrence: SI)
  Receive Date: 20230223
  Receipt Date: 20230223
  Transmission Date: 20230417
  Serious: Yes (Hospitalization, Other)
  Sender: FDA-Public Use
  Company Number: SI-002147023-NVSC2023SI038295

PATIENT
  Age: 52 Year
  Sex: Female

DRUGS (5)
  1. RIBOCICLIB [Suspect]
     Active Substance: RIBOCICLIB
     Indication: Breast cancer metastatic
     Dosage: 600 MG, QD (3 WEEKS ON 1 WEEK OFF)
     Route: 065
  2. RIBOCICLIB [Suspect]
     Active Substance: RIBOCICLIB
     Dosage: 600 MG, QD (3 WEEKS ON 1 WEEK OFF)
     Route: 065
  3. RIBOCICLIB [Suspect]
     Active Substance: RIBOCICLIB
     Dosage: 400 MG, QD (3 WEEKS ON 1 WEEK OFF)
     Route: 065
     Dates: start: 2019
  4. LETROZOLE [Suspect]
     Active Substance: LETROZOLE
     Indication: Breast cancer metastatic
     Dosage: 2.5 MG, QD
     Route: 065
  5. LEVOTHYROXINE [Concomitant]
     Active Substance: LEVOTHYROXINE
     Indication: Hypothyroidism
     Dosage: 50 UG, QD
     Route: 065

REACTIONS (14)
  - Erysipelas [Unknown]
  - Pyrexia [Unknown]
  - Chills [Unknown]
  - Pain [Unknown]
  - Erythema [Unknown]
  - Lymphoedema [Unknown]
  - Arthralgia [Unknown]
  - Mobility decreased [Unknown]
  - Metastases to pleura [Unknown]
  - Neutropenia [Unknown]
  - Pleural effusion [Unknown]
  - Limb injury [Unknown]
  - Carbohydrate antigen 15-3 increased [Unknown]
  - Lymphadenopathy [Unknown]

NARRATIVE: CASE EVENT DATE: 20211001
